FAERS Safety Report 6324897 (Version 2)
Quarter: 2014Q1

REPORT INFORMATION
  Report Type: Spontaneous
  Country: US (occurrence: US)
  Receive Date: 20070601
  Receipt Date: 20140206
  Transmission Date: 20141002
  Serious: Yes (Death, Congenital Anomaly, Other)
  Sender: FDA-Public Use
  Company Number: US-PFIZER INC-2007042527

PATIENT
  Sex: Male

DRUGS (3)
  1. ZOLOFT [Suspect]
     Indication: ANXIETY
     Dosage: UNK
     Route: 064
  2. ZOLOFT [Suspect]
     Indication: DEPRESSION
  3. ZOLOFT [Suspect]
     Indication: AFFECTIVE DISORDER

REACTIONS (6)
  - Maternal exposure during pregnancy [Fatal]
  - Persistent foetal circulation [Fatal]
  - Interruption of aortic arch [Fatal]
  - Cardio-respiratory arrest [Fatal]
  - Congenital anomaly [Fatal]
  - Cardiac disorder [Fatal]
